FAERS Safety Report 17761796 (Version 4)
Quarter: 2021Q2

REPORT INFORMATION
  Report Type: Report from Study
  Country: US (occurrence: US)
  Receive Date: 20200508
  Receipt Date: 20210407
  Transmission Date: 20210716
  Serious: Yes (Hospitalization)
  Sender: FDA-Public Use
  Company Number: NVSC2020US125227

PATIENT
  Sex: Male

DRUGS (7)
  1. TASIGNA [Suspect]
     Active Substance: NILOTINIB
     Dosage: 150 MG, BID (TAKE 2 TABLETS BY MOUTH TWICE A DAY ON AN EMPTY STOMACH 1 HOUR BEFORE OR 2 HOURS AFTER
     Route: 048
  2. TASIGNA [Suspect]
     Active Substance: NILOTINIB
     Indication: LEUKAEMIA
     Dosage: 2 DF, BID
     Route: 065
  3. CITALOPRAM HCL [Concomitant]
     Active Substance: CITALOPRAM HYDROCHLORIDE
     Indication: PRODUCT USED FOR UNKNOWN INDICATION
     Dosage: 40 MG, BID
     Route: 048
  4. ESCITALOPRAM OXALATE. [Concomitant]
     Active Substance: ESCITALOPRAM OXALATE
     Indication: PRODUCT USED FOR UNKNOWN INDICATION
     Dosage: UNK
     Route: 065
  5. LORAZEPAM. [Concomitant]
     Active Substance: LORAZEPAM
     Indication: PRODUCT USED FOR UNKNOWN INDICATION
     Dosage: UNK (TAKE 2 TABLETS BY TWICE A DAY ON AN EMPTY STOMACH, 1 HOUR BEFORE OR 2 HOURS AFTER FOOD)
     Route: 065
  6. TASIGNA [Suspect]
     Active Substance: NILOTINIB
     Dosage: UNK
     Route: 065
     Dates: end: 20210329
  7. TASIGNA [Suspect]
     Active Substance: NILOTINIB
     Dosage: UNK
     Route: 065

REACTIONS (8)
  - Dry skin [Unknown]
  - Diarrhoea [Unknown]
  - Onychoclasis [Unknown]
  - Myalgia [Unknown]
  - Fatigue [Unknown]
  - Myocardial infarction [Unknown]
  - Nausea [Unknown]
  - Anxiety [Not Recovered/Not Resolved]
